FAERS Safety Report 20720101 (Version 1)
Quarter: 2022Q2

REPORT INFORMATION
  Report Type: Spontaneous
  Country: HR (occurrence: None)
  Receive Date: 20220418
  Receipt Date: 20220418
  Transmission Date: 20220720
  Serious: Yes (Other)
  Sender: FDA-Public Use
  Company Number: HR-ROCHE-3077406

PATIENT
  Sex: Female
  Weight: 60 kg

DRUGS (5)
  1. RIVOTRIL [Suspect]
     Active Substance: CLONAZEPAM
     Indication: Product used for unknown indication
     Dosage: 10 MG DAILY (20 TBL AND 0.5 MG)
     Route: 048
     Dates: start: 20220128, end: 20220128
  2. ACETAMINOPHEN\IBUPROFEN [Suspect]
     Active Substance: ACETAMINOPHEN\IBUPROFEN
     Indication: Product used for unknown indication
     Dosage: 100 MG/500 MG
     Route: 048
     Dates: start: 20220128, end: 20220128
  3. KETOPROFEN [Suspect]
     Active Substance: KETOPROFEN
     Indication: Product used for unknown indication
     Dosage: 2000 MG DAILY (TO TBL AND 100 MG)
     Route: 048
     Dates: start: 20220128, end: 20220128
  4. IBUPROFEN [Suspect]
     Active Substance: IBUPROFEN
     Indication: Product used for unknown indication
     Dosage: 1600 MG DAILY (4 TABLETS AND 400 MG)
     Route: 048
     Dates: start: 20220128, end: 20220128
  5. NORMABEL [Suspect]
     Active Substance: DIAZEPAM
     Indication: Product used for unknown indication
     Dosage: 100 MG DAILY (10 TBL AND 10 MG)
     Route: 048
     Dates: start: 20220128, end: 20220128

REACTIONS (4)
  - Suicide attempt [Unknown]
  - Intentional overdose [Unknown]
  - Somnolence [Unknown]
  - Hypotension [Unknown]

NARRATIVE: CASE EVENT DATE: 20220128
